FAERS Safety Report 9601335 (Version 2)
Quarter: 2013Q4

REPORT INFORMATION
  Report Type: Report from Study
  Country: IN (occurrence: IN)
  Receive Date: 20131007
  Receipt Date: 20131011
  Transmission Date: 20140711
  Serious: Yes (Hospitalization)
  Sender: FDA-Public Use
  Company Number: PHHO2013IN012572

PATIENT
  Sex: 0

DRUGS (13)
  1. BLINDED GP2013 [Suspect]
     Indication: NON-HODGKIN^S LYMPHOMA
     Dosage: CODE NOT BROKEN
     Route: 042
     Dates: start: 20130918
  2. BLINDED MABTHERA [Suspect]
     Indication: NON-HODGKIN^S LYMPHOMA
     Dosage: CODE NOT BROKEN
     Route: 042
     Dates: start: 20130918
  3. BLINDED NO TREATMENT RECEIVED [Suspect]
     Indication: NON-HODGKIN^S LYMPHOMA
     Dosage: CODE NOT BROKEN
     Route: 042
     Dates: start: 20130918
  4. VINCRISTINE [Suspect]
     Indication: CHEMOTHERAPY
     Dosage: 2 MG, UNK
     Route: 042
     Dates: start: 20130918
  5. PREDNISOLONE SANDOZ [Suspect]
     Indication: CHEMOTHERAPY
     Dosage: 50 MG, BID
     Route: 048
     Dates: start: 20130918
  6. CYCLOPHOSPHAMIDE [Suspect]
     Indication: CHEMOTHERAPY
     Dosage: 1267.5 MG, UNK
     Route: 042
     Dates: start: 20130918
  7. GLIMESTAR [Concomitant]
     Indication: DIABETES MELLITUS
     Dosage: 2 MG, UNK
     Route: 048
  8. EMESET [Concomitant]
     Indication: PREMEDICATION
     Dosage: 8 MG, UNK
     Route: 042
     Dates: start: 20130918
  9. AVIL [Concomitant]
     Indication: PREMEDICATION
     Dosage: 1 DF, UNK
     Route: 042
     Dates: start: 20130918
  10. RANTAC [Concomitant]
     Indication: PREMEDICATION
     Dosage: 1 DF, UNK
     Route: 042
     Dates: start: 20130918
  11. CALPOL [Concomitant]
     Indication: PREMEDICATION
     Dosage: 500 MG, UNK
     Route: 048
     Dates: start: 20130918
  12. PAN [Concomitant]
     Indication: PROPHYLAXIS
     Dosage: 40 MG, QD
     Route: 048
     Dates: start: 20130919, end: 20130919
  13. PEPTICAINE [Concomitant]
     Indication: PROPHYLAXIS
     Dosage: 2 TPS
     Route: 048
     Dates: start: 20130927

REACTIONS (2)
  - Febrile neutropenia [Recovered/Resolved]
  - Hyperglycaemia [Not Recovered/Not Resolved]
